FAERS Safety Report 8238950-0 (Version None)
Quarter: 2012Q1

REPORT INFORMATION
  Report Type: 
  Country: None (occurrence: None)
  Receive Date: 20120327
  Receipt Date: 20120312
  Transmission Date: 20120608
  Serious: Yes (Other)
  Sender: FDA-Public Use
  Company Number: BR-AMGEN-BRASP2010008652

PATIENT
  Age: 28 Year
  Sex: Female
  Weight: 88 kg

DRUGS (10)
  1. CICLO [Concomitant]
     Indication: CONTRACEPTION
  2. METHOTREXATE [Concomitant]
     Indication: PRODUCT USED FOR UNKNOWN INDICATION
     Dosage: EVERY 15 DAYS
  3. PREDNISONE TAB [Concomitant]
     Indication: PAIN
     Dosage: 5 MG, AS NEEDED
  4. CHLOROQUINE HYDROCHLORIDE [Concomitant]
     Indication: PRODUCT USED FOR UNKNOWN INDICATION
     Dosage: 250 MG, 1X/DAY
  5. FOLIC ACID [Concomitant]
     Dosage: UNK
  6. DIPIRONA                           /06276701/ [Concomitant]
     Dosage: UNK
  7. ACETAMINOPHEN [Concomitant]
     Dosage: STRENGTH 500 MG
  8. ETANERCEPT [Suspect]
     Indication: RHEUMATOID ARTHRITIS
     Dosage: 50 MG, QWK
     Dates: start: 20101001
  9. IBUPROFEN [Concomitant]
     Indication: PAIN
     Dosage: 300 MG, AS NEEDED
  10. AD-TIL [Concomitant]
     Dosage: UNK

REACTIONS (8)
  - MENORRHAGIA [None]
  - ARTHRALGIA [None]
  - INJECTION SITE SWELLING [None]
  - INJECTION SITE PRURITUS [None]
  - INJECTION SITE ERYTHEMA [None]
  - HIP DEFORMITY [None]
  - MENSTRUATION DELAYED [None]
  - WALKING AID USER [None]
